FAERS Safety Report 25560007 (Version 1)
Quarter: 2025Q3

REPORT INFORMATION
  Report Type: Spontaneous
  Country: US (occurrence: US)
  Receive Date: 20250715
  Receipt Date: 20250715
  Transmission Date: 20251021
  Serious: No
  Sender: NOVO NORDISK
  Company Number: US-NOVOPROD-1386159

PATIENT
  Sex: Male

DRUGS (1)
  1. OZEMPIC [Suspect]
     Active Substance: SEMAGLUTIDE
     Indication: Type 2 diabetes mellitus
     Dosage: 2 MG,WEEKLY
     Route: 058
     Dates: start: 202408

REACTIONS (5)
  - Anxiety [Not Recovered/Not Resolved]
  - Feeling abnormal [Unknown]
  - Memory impairment [Unknown]
  - Insomnia [Not Recovered/Not Resolved]
  - Product use complaint [Unknown]
